FAERS Safety Report 4824648-5 (Version None)
Quarter: 2005Q4

REPORT INFORMATION
  Report Type: 
  Country: None (occurrence: None)
  Receive Date: 20051012
  Receipt Date: 20050720
  Transmission Date: 20060501
  Serious: No
  Sender: FDA-Public Use
  Company Number: 2005S1000162

PATIENT
  Age: 66 Year
  Weight: 90 kg

DRUGS (12)
  1. CUBICIN [Suspect]
     Indication: DRUG RESISTANCE
     Dosage: 500 MG; IV
     Route: 042
     Dates: start: 20050708
  2. CUBICIN [Suspect]
     Indication: ENTEROCOCCAL BACTERAEMIA
     Dosage: 500 MG; IV
     Route: 042
     Dates: start: 20050708
  3. CUBICIN [Suspect]
     Indication: STAPHYLOCOCCAL INFECTION
     Dosage: 500 MG; IV
     Route: 042
     Dates: start: 20050708
  4. TOTAL PARENTERAL [Concomitant]
  5. NUTRITION [Concomitant]
  6. ZANTAC [Concomitant]
  7. INSULIN [Concomitant]
  8. NYSTATIN [Concomitant]
  9. VANCOMYCIN [Concomitant]
  10. CEFTAZIDIME [Concomitant]
  11. METRONIDAZOLE [Concomitant]
  12. DIFLUCAN [Concomitant]

REACTIONS (1)
  - HYPERPHOSPHATAEMIA [None]
